FAERS Safety Report 14204124 (Version 2)
Quarter: 2017Q4

REPORT INFORMATION
  Report Type: Report from Study
  Country: LB (occurrence: LB)
  Receive Date: 20171120
  Receipt Date: 20171211
  Transmission Date: 20180321
  Serious: Yes (Hospitalization)
  Sender: FDA-Public Use
  Company Number: PHHY2017LB169753

PATIENT
  Age: 29 Year
  Sex: Female

DRUGS (2)
  1. ENTRESTO [Suspect]
     Active Substance: SACUBITRIL\VALSARTAN
     Dosage: 0.5 DF (49 MG SACUBITRIL AND 59 MG VALSARTAN), BID (HALF AT AM AND HALF AT PM)
     Route: 048
     Dates: start: 20171004
  2. ENTRESTO [Suspect]
     Active Substance: SACUBITRIL\VALSARTAN
     Indication: PRODUCT USED FOR UNKNOWN INDICATION
     Dosage: 0.5 DF (49 MG SACUBITRIL AND 59 MG VALSARTAN), BID (HALF AT AM AND HALF AT PM)
     Route: 048
     Dates: start: 20170902, end: 20170930

REACTIONS (4)
  - Wrong technique in product usage process [Unknown]
  - Palpitations [Unknown]
  - Dyspnoea [Unknown]
  - Arrhythmia [Recovering/Resolving]

NARRATIVE: CASE EVENT DATE: 20170902
